FAERS Safety Report 4825947-3 (Version None)
Quarter: 2005Q4

REPORT INFORMATION
  Report Type: 
  Country: None (occurrence: None)
  Receive Date: 20051110
  Receipt Date: 20051110
  Transmission Date: 20060501
  Serious: Yes (Death)
  Sender: FDA-Public Use
  Company Number: None

PATIENT
  Age: 56 Year
  Sex: Male

DRUGS (11)
  1. OXALIPLATIN [Suspect]
     Indication: NON-SMALL CELL LUNG CANCER
     Dosage: 1000 MG
     Dates: start: 20050822
  2. GEMCITABINE [Suspect]
     Indication: NON-SMALL CELL LUNG CANCER
     Dosage: 100 MG
     Dates: start: 20050822
  3. GLYBURIDE [Concomitant]
  4. TOPROL-XL [Concomitant]
  5. NAPROSYN [Concomitant]
  6. DOXYCYCLINE [Concomitant]
  7. RESTORIL [Concomitant]
  8. GLUCOPHAGE [Concomitant]
  9. LOTREL [Concomitant]
  10. ECOTRIN [Concomitant]
  11. CLONIDINE [Concomitant]

REACTIONS (17)
  - ANAEMIA [None]
  - ANOREXIA [None]
  - ASTHENIA [None]
  - ATRIAL FIBRILLATION [None]
  - ATRIAL FLUTTER [None]
  - CARDIAC FAILURE CONGESTIVE [None]
  - CARDIOMEGALY [None]
  - CARDIOMYOPATHY [None]
  - CHRONIC OBSTRUCTIVE PULMONARY DISEASE [None]
  - DEEP VEIN THROMBOSIS [None]
  - DIABETES MELLITUS NON-INSULIN-DEPENDENT [None]
  - GENERAL PHYSICAL HEALTH DETERIORATION [None]
  - HYPERTENSION [None]
  - LUNG DISORDER [None]
  - MULTI-ORGAN FAILURE [None]
  - PLEURAL EFFUSION [None]
  - RENAL FAILURE [None]
